FAERS Safety Report 7414791-9 (Version None)
Quarter: 2011Q2

REPORT INFORMATION
  Report Type: 
  Country: None (occurrence: None)
  Receive Date: 20110414
  Receipt Date: 20110411
  Transmission Date: 20111010
  Serious: Yes (Other)
  Sender: FDA-Public Use
  Company Number: JP-PFIZER INC-2011079569

PATIENT
  Age: 10 Year
  Sex: Male

DRUGS (1)
  1. SOMATROPIN [Suspect]
     Indication: GROWTH HORMONE DEFICIENCY
     Dosage: 0.025 MG/KG/DAY
     Route: 058

REACTIONS (2)
  - NEOPLASM RECURRENCE [None]
  - CRANIOPHARYNGIOMA [None]
